FAERS Safety Report 4997158-2 (Version None)
Quarter: 2006Q2

REPORT INFORMATION
  Report Type: 
  Country: None (occurrence: None)
  Receive Date: 20060505
  Receipt Date: 20060505
  Transmission Date: 20061013
  Serious: Yes (Hospitalization)
  Sender: FDA-Public Use
  Company Number: None

PATIENT
  Sex: Male
  Weight: 66.4066 kg

DRUGS (13)
  1. CAPECITABINE [Suspect]
     Indication: BILE DUCT CANCER
     Dosage: 825 MG/M2 BID PO
     Route: 048
     Dates: start: 20051205, end: 20060107
  2. OXALIPLATIN [Suspect]
     Indication: BILE DUCT CANCER
     Dosage: 50 MG/M2 IV WEEKLY
     Route: 042
     Dates: start: 20051205, end: 20060103
  3. AVASTIN [Suspect]
     Indication: BILE DUCT CANCER
     Dosage: 5 MG/KG  IV   Q2WEEKS
     Route: 042
     Dates: start: 20051205, end: 20060103
  4. ASPIRIN [Concomitant]
  5. M.V.I. [Concomitant]
  6. HYDROCHLOROTHIAZIDE [Concomitant]
  7. DEXAMETHASONE [Concomitant]
  8. ONDANSETRON HCL [Concomitant]
  9. LORAZEPAM [Concomitant]
  10. COMPAZINE [Concomitant]
  11. TOPROL-XL [Concomitant]
  12. MEGACE [Concomitant]
  13. OMEPRAZOLE [Concomitant]

REACTIONS (10)
  - ACQUIRED DIAPHRAGMATIC EVENTRATION [None]
  - ARRHYTHMIA [None]
  - CHOLANGITIS [None]
  - DEHYDRATION [None]
  - DISEASE PROGRESSION [None]
  - FAILURE TO THRIVE [None]
  - FATIGUE [None]
  - HICCUPS [None]
  - PNEUMONIA [None]
  - STENT OCCLUSION [None]
